FAERS Safety Report 9960685 (Version 1)
Quarter: 2014Q1

REPORT INFORMATION
  Report Type: Spontaneous
  Country: US (occurrence: US)
  Receive Date: 20140305
  Receipt Date: 20140305
  Transmission Date: 20141002
  Serious: No
  Sender: FDA-Public Use
  Company Number: US-JNJFOC-20140213503

PATIENT
  Sex: 0

DRUGS (1)
  1. DURAGESIC [Suspect]
     Indication: PAIN
     Route: 062

REACTIONS (5)
  - Drug prescribing error [Unknown]
  - Application site irritation [Unknown]
  - Wrong technique in drug usage process [Unknown]
  - Application site discolouration [Unknown]
  - Application site rash [Unknown]
